FAERS Safety Report 15724050 (Version 1)
Quarter: 2018Q4

REPORT INFORMATION
  Report Type: Spontaneous
  Country: US (occurrence: US)
  Receive Date: 20181214
  Receipt Date: 20181214
  Transmission Date: 20190205
  Serious: No
  Sender: FDA-Public Use
  Company Number: US-JNJFOC-20181124473

PATIENT
  Sex: Female
  Weight: 68.04 kg

DRUGS (3)
  1. XARELTO [Concomitant]
     Active Substance: RIVAROXABAN
     Indication: ANTICOAGULANT THERAPY
     Route: 048
     Dates: start: 20181031, end: 20181113
  2. ALEVE [Concomitant]
     Active Substance: NAPROXEN SODIUM
     Indication: INFLAMMATION
     Route: 065
  3. TYLENOL EXTRA STRENGTH [Suspect]
     Active Substance: ACETAMINOPHEN
     Indication: PAIN
     Route: 048

REACTIONS (3)
  - Therapeutic response unexpected [Unknown]
  - Product container issue [Unknown]
  - Product use in unapproved indication [Unknown]
